FAERS Safety Report 7198860-7 (Version None)
Quarter: 2010Q4

REPORT INFORMATION
  Report Type: 
  Country: None (occurrence: None)
  Receive Date: 20101227
  Receipt Date: 20101214
  Transmission Date: 20110411
  Serious: Yes (Hospitalization, Other)
  Sender: FDA-Public Use
  Company Number: US-ELI_LILLY_AND_COMPANY-US200805002567

PATIENT
  Sex: Female
  Weight: 72.562 kg

DRUGS (7)
  1. BYETTA [Suspect]
     Indication: TYPE 2 DIABETES MELLITUS
     Dosage: 5 UG, 2/D
     Route: 058
     Dates: start: 20080101, end: 20080301
  2. BYETTA [Suspect]
     Dosage: 10 UG, 2/D
     Route: 058
     Dates: start: 20080301
  3. BYETTA [Suspect]
     Dosage: 10 UG, 2/D
     Route: 058
  4. GLUCOPHAGE /USA/ [Concomitant]
     Indication: TYPE 2 DIABETES MELLITUS
     Dosage: 500 MG, EACH EVENING
     Route: 048
  5. GLIPIZIDE [Concomitant]
     Indication: TYPE 2 DIABETES MELLITUS
     Dosage: 2.5 MG, 3 TABLETS TWICE DAILY
  6. ANTIHYPERTENSIVES [Concomitant]
  7. LEVOTHYROXINE [Concomitant]
     Indication: THYROID DISORDER
     Dosage: 0.125 UG, EACH MORNING
     Route: 048

REACTIONS (14)
  - BLOOD GLUCOSE INCREASED [None]
  - DECREASED APPETITE [None]
  - DRUG EFFECT DECREASED [None]
  - GOITRE [None]
  - HUNGER [None]
  - INJECTION SITE HAEMATOMA [None]
  - INJECTION SITE NODULE [None]
  - INJECTION SITE PAIN [None]
  - NAUSEA [None]
  - POOR QUALITY SLEEP [None]
  - SLEEP APNOEA SYNDROME [None]
  - TRACHEAL DISORDER [None]
  - VOCAL CORD DISORDER [None]
  - WEIGHT DECREASED [None]
